FAERS Safety Report 8112424-X (Version None)
Quarter: 2012Q1

REPORT INFORMATION
  Report Type: 
  Country: None (occurrence: None)
  Receive Date: 20120131
  Receipt Date: 20120119
  Transmission Date: 20120608
  Serious: Yes (Other)
  Sender: FDA-Public Use
  Company Number: AUR-APL-2012-00664

PATIENT
  Age: 25 Year
  Sex: Male
  Weight: 113.3 kg

DRUGS (2)
  1. BENEFIX [Suspect]
     Indication: FACTOR IX DEFICIENCY
  2. AMOXICILLIN [Suspect]
     Indication: EAR INFECTION
     Dosage: 1500 MG (500 MG, 3 IN 1 D),

REACTIONS (2)
  - EAR INFECTION [None]
  - DRUG INEFFECTIVE [None]
